FAERS Safety Report 12441576 (Version 15)
Quarter: 2019Q4

REPORT INFORMATION
  Report Type: Report from Study
  Country: CA (occurrence: CA)
  Receive Date: 20160607
  Receipt Date: 20191120
  Transmission Date: 20200122
  Serious: Yes (Other)
  Sender: FDA-Public Use
  Company Number: CA-ROCHE-1561665

PATIENT
  Age: 41 Year
  Sex: Female

DRUGS (15)
  1. XOLAIR [Suspect]
     Active Substance: OMALIZUMAB
     Route: 058
     Dates: start: 20161201
  2. CYCLOSPORINE. [Suspect]
     Active Substance: CYCLOSPORINE
     Indication: PRODUCT USED FOR UNKNOWN INDICATION
     Route: 065
  3. XOLAIR [Suspect]
     Active Substance: OMALIZUMAB
     Route: 058
     Dates: start: 20190228
  4. XOLAIR [Suspect]
     Active Substance: OMALIZUMAB
     Route: 058
     Dates: start: 20190917
  5. XOLAIR [Suspect]
     Active Substance: OMALIZUMAB
     Route: 058
     Dates: start: 20191011
  6. XOLAIR [Suspect]
     Active Substance: OMALIZUMAB
     Route: 058
     Dates: start: 20160324
  7. XOLAIR [Suspect]
     Active Substance: OMALIZUMAB
     Route: 058
     Dates: start: 20161229
  8. XOLAIR [Suspect]
     Active Substance: OMALIZUMAB
     Route: 058
     Dates: start: 20180125
  9. CODEINE [Suspect]
     Active Substance: CODEINE
     Indication: PRODUCT USED FOR UNKNOWN INDICATION
     Route: 065
  10. XOLAIR [Suspect]
     Active Substance: OMALIZUMAB
     Route: 058
     Dates: start: 20180324
  11. XOLAIR [Suspect]
     Active Substance: OMALIZUMAB
     Route: 058
     Dates: start: 20161229
  12. XOLAIR [Suspect]
     Active Substance: OMALIZUMAB
     Route: 058
     Dates: start: 20171130
  13. XOLAIR [Suspect]
     Active Substance: OMALIZUMAB
     Route: 058
     Dates: start: 20190131
  14. XOLAIR [Suspect]
     Active Substance: OMALIZUMAB
     Indication: CHRONIC SPONTANEOUS URTICARIA
     Route: 058
     Dates: start: 20150326
  15. XOLAIR [Suspect]
     Active Substance: OMALIZUMAB
     Route: 058
     Dates: start: 20160908

REACTIONS (23)
  - Drug hypersensitivity [Unknown]
  - Hyperthermia [Recovered/Resolved]
  - Aphonia [Not Recovered/Not Resolved]
  - Paraesthesia [Unknown]
  - Oropharyngeal pain [Unknown]
  - Dysphonia [Unknown]
  - Cough [Unknown]
  - Pain [Unknown]
  - Skin plaque [Not Recovered/Not Resolved]
  - Oedema peripheral [Unknown]
  - Therapeutic product effect incomplete [Unknown]
  - Circumoral swelling [Unknown]
  - Pain in extremity [Unknown]
  - Throat irritation [Unknown]
  - Lip pruritus [Unknown]
  - Hypersensitivity [Recovering/Resolving]
  - Inappropriate schedule of product administration [Unknown]
  - Choking sensation [Unknown]
  - Paraesthesia oral [Recovering/Resolving]
  - Urticaria [Unknown]
  - Peripheral swelling [Unknown]
  - Cold urticaria [Not Recovered/Not Resolved]
  - Temperature intolerance [Unknown]

NARRATIVE: CASE EVENT DATE: 20150327
